FAERS Safety Report 22252070 (Version 1)
Quarter: 2023Q2

REPORT INFORMATION
  Report Type: Spontaneous
  Country: US (occurrence: US)
  Receive Date: 20230425
  Receipt Date: 20230425
  Transmission Date: 20230722
  Serious: No
  Sender: FDA-Public Use
  Company Number: US-PURDUE PHARMA-USA-2022-0297485

PATIENT
  Sex: Female
  Weight: 47.17 kg

DRUGS (8)
  1. OXYCODONE HYDROCHLORIDE [Suspect]
     Active Substance: OXYCODONE HYDROCHLORIDE
     Indication: Product used for unknown indication
     Dosage: 5 MILLIGRAM, A DAY
     Route: 065
  2. PAXLOVID [Suspect]
     Active Substance: NIRMATRELVIR\RITONAVIR
     Indication: COVID-19
     Dosage: 1 LARGER PILL AND 2 SMALLER PILLS TWICE DAILY FOR 5 DAYS
     Route: 065
     Dates: start: 20221010, end: 20221014
  3. TIZANIDINE [Suspect]
     Active Substance: TIZANIDINE
     Indication: Arthralgia
     Dosage: 2 MG TABLET-1-2 TABLETS BY MOUTH EVERY 6 HOURS
     Route: 065
     Dates: start: 20220925
  4. TIZANIDINE [Suspect]
     Active Substance: TIZANIDINE
     Indication: Sciatica
  5. TRAZODONE [Suspect]
     Active Substance: TRAZODONE HYDROCHLORIDE
     Indication: Product used for unknown indication
     Dosage: 3-100 MG TABLET AT BEDTIME HCL
     Route: 065
  6. TRAZODONE [Suspect]
     Active Substance: TRAZODONE HYDROCHLORIDE
     Dosage: 150 MILLIGRAM NIGHTLY
     Route: 065
  7. CLONAZEPAM [Suspect]
     Active Substance: CLONAZEPAM
     Indication: Generalised anxiety disorder
     Dosage: 2 MILLIGRAM, BID
     Route: 065
  8. CLONAZEPAM [Suspect]
     Active Substance: CLONAZEPAM
     Indication: Major depression
     Dosage: HALF TABLET AT NIGHT
     Route: 065

REACTIONS (1)
  - Drug withdrawal syndrome [Unknown]
